FAERS Safety Report 18994944 (Version 1)
Quarter: 2021Q1

REPORT INFORMATION
  Report Type: Spontaneous
  Country: US (occurrence: US)
  Receive Date: 20210310
  Receipt Date: 20210310
  Transmission Date: 20210420
  Serious: No
  Sender: FDA-Public Use
  Company Number: US-EYEVANCE PHARMACEUTICALS-2020EYE00025

PATIENT
  Age: 57 Year
  Sex: Female

DRUGS (1)
  1. FLAREX [Suspect]
     Active Substance: FLUOROMETHOLONE ACETATE
     Dosage: UNK UNK, 2X/DAY
     Route: 047
     Dates: start: 202002

REACTIONS (4)
  - Product dose omission issue [Unknown]
  - Eye irritation [Unknown]
  - Prescribed underdose [Not Recovered/Not Resolved]
  - Drug ineffective [Unknown]

NARRATIVE: CASE EVENT DATE: 202002
